FAERS Safety Report 17888700 (Version 5)
Quarter: 2020Q3

REPORT INFORMATION
  Report Type: Spontaneous
  Country: TW (occurrence: TW)
  Receive Date: 20200612
  Receipt Date: 20200821
  Transmission Date: 20201103
  Serious: Yes (Other)
  Sender: FDA-Public Use
  Company Number: TW-AMGEN-TWNSP2020069137

PATIENT
  Age: 25 Year
  Sex: Female

DRUGS (2)
  1. ENBREL [Suspect]
     Active Substance: ETANERCEPT
     Indication: RHEUMATOID ARTHRITIS
     Dosage: 50 MG, WEEKLY
     Route: 058
     Dates: start: 20180816
  2. ENBREL [Suspect]
     Active Substance: ETANERCEPT
     Indication: RHEUMATOID ARTHRITIS

REACTIONS (15)
  - Pulmonary hypertension [Not Recovered/Not Resolved]
  - Systemic lupus erythematosus disease activity index increased [Not Recovered/Not Resolved]
  - Asthma [Unknown]
  - Lymphadenopathy [Recovered/Resolved]
  - Pyrexia [Not Recovered/Not Resolved]
  - Vocal cord paralysis [Unknown]
  - Systemic lupus erythematosus [Not Recovered/Not Resolved]
  - Dysphonia [Not Recovered/Not Resolved]
  - Pulmonary oedema [Unknown]
  - Infection [Recovered/Resolved]
  - Oropharyngeal pain [Not Recovered/Not Resolved]
  - Red blood cell sedimentation rate increased [Not Recovered/Not Resolved]
  - Blood creatinine abnormal [Unknown]
  - C-reactive protein increased [Not Recovered/Not Resolved]
  - Pharyngitis [Not Recovered/Not Resolved]

NARRATIVE: CASE EVENT DATE: 2020
